FAERS Safety Report 10678005 (Version 1)
Quarter: 2014Q4

REPORT INFORMATION
  Report Type: Spontaneous
  Country: US (occurrence: US)
  Receive Date: 20141229
  Receipt Date: 20141229
  Transmission Date: 20150529
  Serious: Yes (Hospitalization)
  Sender: FDA-Public Use
  Company Number: US-BIOGENIDEC-2014BI134563

PATIENT
  Age: 47 Year
  Sex: Female

DRUGS (10)
  1. NEXIUM [Concomitant]
     Active Substance: ESOMEPRAZOLE MAGNESIUM
     Indication: GASTROOESOPHAGEAL REFLUX DISEASE
  2. LIPITOR [Concomitant]
     Active Substance: ATORVASTATIN CALCIUM
     Indication: HYPERLIPIDAEMIA
  3. VITAMIN D [Concomitant]
     Active Substance: CHOLECALCIFEROL
     Indication: HYPERTENSION
  4. ASPIRIN. [Concomitant]
     Active Substance: ASPIRIN
     Indication: HYPERLIPIDAEMIA
  5. CAMILA [Concomitant]
     Active Substance: NORETHINDRONE
     Indication: CAESAREAN SECTION
  6. ZOLOFT [Concomitant]
     Active Substance: SERTRALINE HYDROCHLORIDE
     Indication: DEPRESSION
  7. SERTRALINE [Concomitant]
     Active Substance: SERTRALINE HYDROCHLORIDE
     Indication: DEPRESSION
  8. HYDROCHLOROTHIZIDE [Concomitant]
     Active Substance: HYDROCHLOROTHIAZIDE
     Indication: HYPERTENSION
  9. PROBIOTIC [Concomitant]
     Active Substance: PROBIOTICS NOS
  10. TECFIDERA [Suspect]
     Active Substance: DIMETHYL FUMARATE
     Indication: RELAPSING-REMITTING MULTIPLE SCLEROSIS
     Route: 048
     Dates: start: 20141126, end: 20141215

REACTIONS (3)
  - Pneumonia [Unknown]
  - Urinary tract infection [Unknown]
  - Lymphopenia [Recovered/Resolved]

NARRATIVE: CASE EVENT DATE: 20141215
